FAERS Safety Report 7710542-9 (Version None)
Quarter: 2011Q3

REPORT INFORMATION
  Report Type: 
  Country: None (occurrence: None)
  Receive Date: 20110825
  Receipt Date: 20110818
  Transmission Date: 20111222
  Serious: Yes (Other)
  Sender: FDA-Public Use
  Company Number: US-PFIZER INC-2007036481

PATIENT
  Sex: Female

DRUGS (2)
  1. NEURONTIN [Suspect]
     Indication: BACK PAIN
     Dosage: 300 MG, UNK
     Dates: start: 19980301
  2. NEURONTIN [Suspect]
     Dosage: 800 MG, UNK
     Dates: start: 20000701

REACTIONS (2)
  - SUICIDAL IDEATION [None]
  - AMNESIA [None]
